FAERS Safety Report 10067308 (Version 1)
Quarter: 2014Q2

REPORT INFORMATION
  Report Type: Spontaneous
  Country: GB (occurrence: GB)
  Receive Date: 20140409
  Receipt Date: 20140409
  Transmission Date: 20141212
  Serious: Yes (Other)
  Sender: FDA-Public Use
  Company Number: GB-ACCORD-022855

PATIENT
  Age: 45 Year
  Sex: Male
  Weight: 74 kg

DRUGS (4)
  1. AMLODIPINE [Suspect]
     Indication: HYPERTENSION
     Route: 048
     Dates: start: 20140102, end: 20140226
  2. DOXAZOSIN [Concomitant]
  3. LISINOPRIL [Concomitant]
  4. BENDROFLUMETHIAZIDE [Concomitant]

REACTIONS (3)
  - Retching [Recovered/Resolved]
  - Nausea [Recovered/Resolved]
  - Vomiting [Recovered/Resolved]
